FAERS Safety Report 19750485 (Version 1)
Quarter: 2021Q3

REPORT INFORMATION
  Report Type: Spontaneous
  Country: US (occurrence: US)
  Receive Date: 20210826
  Receipt Date: 20210826
  Transmission Date: 20211014
  Serious: Yes (Hospitalization)
  Sender: FDA-Public Use
  Company Number: US-REDHILL BIOPHARMA-2021RDH00144

PATIENT
  Sex: Female

DRUGS (1)
  1. MOVANTIK [Suspect]
     Active Substance: NALOXEGOL OXALATE
     Indication: CONSTIPATION
     Dosage: 25 MG, ONCE
     Route: 048
     Dates: start: 20210113, end: 20210113

REACTIONS (5)
  - Frequent bowel movements [Not Recovered/Not Resolved]
  - Product use in unapproved indication [Recovered/Resolved]
  - Pain [Recovering/Resolving]
  - Dehydration [Unknown]
  - Diarrhoea [Not Recovered/Not Resolved]

NARRATIVE: CASE EVENT DATE: 2021
